FAERS Safety Report 8334297-2 (Version None)
Quarter: 2012Q2

REPORT INFORMATION
  Report Type: 
  Country: None (occurrence: None)
  Receive Date: 20120503
  Receipt Date: 20120503
  Transmission Date: 20120825
  Serious: Yes (Other)
  Sender: FDA-Public Use
  Company Number: GB-PFIZER INC-2012101950

PATIENT
  Age: 79 Year
  Sex: Female

DRUGS (6)
  1. SIMVASTATIN [Concomitant]
     Dosage: 40 MG, 1X/DAY
     Route: 048
  2. ASPIRIN AND DIPYRIDAMOLE [Concomitant]
     Dosage: 1 DF, 2X/DAY
     Route: 048
  3. AMLODIPINE BESYLATE [Suspect]
     Indication: HYPERTENSION
     Route: 048
     Dates: start: 20120329
  4. NICORANDIL [Concomitant]
     Dosage: 20 MG, 2X/DAY
     Route: 048
     Dates: start: 20120329
  5. DILTIAZEM [Concomitant]
     Dosage: 300 MG, 1X/DAY
     Route: 048
     Dates: end: 20120328
  6. RAMIPRIL [Concomitant]
     Dosage: 5 MG, 2X/DAY
     Route: 048

REACTIONS (3)
  - DYSPNOEA [None]
  - DYSARTHRIA [None]
  - PALPITATIONS [None]
